FAERS Safety Report 9494287 (Version 1)
Quarter: 2013Q3

REPORT INFORMATION
  Report Type: Spontaneous
  Country: US (occurrence: US)
  Receive Date: 20130903
  Receipt Date: 20130903
  Transmission Date: 20140515
  Serious: Yes (Hospitalization)
  Sender: FDA-Public Use
  Company Number: US-CELGENEUS-163-20785-13082684

PATIENT
  Sex: Female

DRUGS (1)
  1. THALOMID [Suspect]
     Indication: MONOCLONAL GAMMOPATHY
     Dosage: 200 MILLIGRAM
     Route: 048
     Dates: start: 201303

REACTIONS (1)
  - Hyperammonaemia [Unknown]
